FAERS Safety Report 11416064 (Version 1)
Quarter: 2015Q3

REPORT INFORMATION
  Report Type: Spontaneous
  Country: US (occurrence: None)
  Receive Date: 20150824
  Receipt Date: 20150824
  Transmission Date: 20151125
  Serious: Yes (Other)
  Sender: FDA-Public Use
  Company Number: None

PATIENT
  Age: 65 Year
  Sex: Male
  Weight: 113.4 kg

DRUGS (18)
  1. CELECOXIB 200 MG TEVA USA [Suspect]
     Active Substance: CELECOXIB
     Indication: ARTHRITIS
     Dosage: 30 PILLS I PILL/DOSE
     Route: 048
     Dates: start: 20150814, end: 20150820
  2. CELECOXIB 200 MG TEVA USA [Suspect]
     Active Substance: CELECOXIB
     Indication: ARTHRALGIA
     Dosage: 30 PILLS I PILL/DOSE
     Route: 048
     Dates: start: 20150814, end: 20150820
  3. SODIUM NAPROXEN [Concomitant]
  4. ZOLPIDEM (AMBIEN GENERIC) [Concomitant]
  5. VITAMIN B COMPLEX [Concomitant]
     Active Substance: CYANOCOBALAMIN\DEXPANTHENOL\NIACINAMIDE\PYRIDOXINE HYDROCHLORIDE\RIBOFLAVIN 5^-PHOSPHATE SODIUM\THIAMINE HYDROCHLORIDE\VITAMIN B COMPLEX
  6. FISH OR FLAX SEED OIL [Concomitant]
  7. CALCIUM GEL [Concomitant]
  8. ONE-A-DAY NOS [Concomitant]
     Active Substance: MINERALS\VITAMINS
  9. LUTEIN [Concomitant]
     Active Substance: LUTEIN
  10. VITAMIN D3 [Concomitant]
     Active Substance: CHOLECALCIFEROL
  11. ACETOMETOPHEN [Concomitant]
  12. CYMBALTA [Concomitant]
     Active Substance: DULOXETINE HYDROCHLORIDE
  13. VITAMIN C [Concomitant]
     Active Substance: ASCORBIC ACID
  14. SEA KELP (IODINE) [Concomitant]
  15. BLACK CHERRY CAPSULES [Concomitant]
  16. NORCO [Concomitant]
     Active Substance: ACETAMINOPHEN\HYDROCODONE BITARTRATE
  17. BIOTIN [Concomitant]
     Active Substance: BIOTIN
  18. ASPIRIN. [Concomitant]
     Active Substance: ASPIRIN

REACTIONS (5)
  - Balance disorder [None]
  - Blood pressure increased [None]
  - General physical health deterioration [None]
  - Respiratory tract congestion [None]
  - Chest discomfort [None]

NARRATIVE: CASE EVENT DATE: 20150820
